FAERS Safety Report 11662990 (Version 1)
Quarter: 2015Q4

REPORT INFORMATION
  Report Type: Spontaneous
  Country: US (occurrence: US)
  Receive Date: 20151027
  Receipt Date: 20151027
  Transmission Date: 20160304
  Serious: No
  Sender: FDA-Public Use
  Company Number: US-MEDA-2009090030

PATIENT
  Age: 63 Year
  Sex: Male

DRUGS (1)
  1. EDLUAR [Suspect]
     Active Substance: ZOLPIDEM TARTRATE
     Route: 060
     Dates: start: 200909, end: 200909

REACTIONS (1)
  - Hallucination [Recovered/Resolved]

NARRATIVE: CASE EVENT DATE: 200909
